FAERS Safety Report 6316083-8 (Version None)
Quarter: 2009Q3

REPORT INFORMATION
  Report Type: 
  Country: None (occurrence: None)
  Receive Date: 20090820
  Receipt Date: 20090812
  Transmission Date: 20100115
  Serious: Yes (Other)
  Sender: FDA-Public Use
  Company Number: PHHY2009IT34214

PATIENT
  Sex: Male

DRUGS (3)
  1. ZOMETA [Suspect]
     Indication: RENAL CANCER
     Dosage: 4 MG PER MONTH
     Route: 042
     Dates: start: 20050801, end: 20060930
  2. TEMSIROLIMUS [Suspect]
     Indication: RENAL CANCER
     Dosage: 25 MG PER WEEK
     Route: 042
     Dates: start: 20070901, end: 20071031
  3. SUTENT [Concomitant]
     Dosage: UNK
     Dates: start: 20070201, end: 20071031

REACTIONS (1)
  - OSTEONECROSIS [None]
